FAERS Safety Report 7390770-5 (Version None)
Quarter: 2011Q2

REPORT INFORMATION
  Report Type: 
  Country: None (occurrence: None)
  Receive Date: 20110404
  Receipt Date: 20110328
  Transmission Date: 20111010
  Serious: No
  Sender: FDA-Public Use
  Company Number: US-BIOGENIDEC-2011BI011438

PATIENT
  Sex: Male

DRUGS (4)
  1. BENADRYL [Concomitant]
     Indication: UPPER-AIRWAY COUGH SYNDROME
  2. TYSABRI [Suspect]
     Indication: MULTIPLE SCLEROSIS
     Route: 042
     Dates: start: 20090514, end: 20091112
  3. TYSABRI [Suspect]
     Route: 042
     Dates: start: 20091210
  4. CLARITIN [Concomitant]
     Indication: UPPER-AIRWAY COUGH SYNDROME

REACTIONS (5)
  - SINUSITIS [None]
  - UPPER-AIRWAY COUGH SYNDROME [None]
  - SINUS DISORDER [None]
  - NASOPHARYNGITIS [None]
  - STRESS [None]
